FAERS Safety Report 15320922 (Version 2)
Quarter: 2018Q3

REPORT INFORMATION
  Report Type: Report from Study
  Country: US (occurrence: US)
  Receive Date: 20180827
  Receipt Date: 20180924
  Transmission Date: 20181010
  Serious: Yes (Other)
  Sender: FDA-Public Use
  Company Number: US-PFIZER INC-2018339902

PATIENT

DRUGS (4)
  1. DOBUTAMINE HCL [Suspect]
     Active Substance: DOBUTAMINE HYDROCHLORIDE
     Dosage: UNK (TITRATED AT 10 MCG INCREMENTS TO A MAXIMUM DOSE OF 40 MCG/KG/MIN)
  2. DOBUTAMINE HCL [Suspect]
     Active Substance: DOBUTAMINE HYDROCHLORIDE
     Indication: STRESS ECHOCARDIOGRAM
     Dosage: UNK (10 MCG/KG/MIN AND INFUSED FOR APPROXIMATELY 3 MINUTES)
  3. ATROPINE. [Concomitant]
     Active Substance: ATROPINE
     Indication: ADJUVANT THERAPY
     Dosage: 0.25 MG, UNK (TO A TOTAL OF 2.0 MG WAS GIVEN AS AN ADJUNCT TO THE DOBUTAMINE)
  4. ATROPINE. [Concomitant]
     Active Substance: ATROPINE
     Dosage: 0.5 MG, UNK  (TO A TOTAL OF 2.0 MG WAS GIVEN AS AN ADJUNCT TO THE DOBUTAMINE)

REACTIONS (1)
  - Arrhythmia [Recovering/Resolving]
